FAERS Safety Report 6232491-8 (Version None)
Quarter: 2009Q2

REPORT INFORMATION
  Report Type: 
  Country: None (occurrence: None)
  Receive Date: 20090615
  Receipt Date: 20090615
  Transmission Date: 20091009
  Serious: Yes (Disabling, Other)
  Sender: FDA-Public Use
  Company Number: None

PATIENT
  Age: 53 Year
  Sex: Male
  Weight: 130.6359 kg

DRUGS (1)
  1. PROVIGIL [Suspect]
     Indication: SLEEP DISORDER
     Dosage: 1 A DAY PO
     Route: 048
     Dates: start: 20081001, end: 20090201

REACTIONS (4)
  - BACK PAIN [None]
  - CHEST PAIN [None]
  - FLATULENCE [None]
  - NECK PAIN [None]
